FAERS Safety Report 5798862-9 (Version None)
Quarter: 2008Q2

REPORT INFORMATION
  Report Type: 
  Country: None (occurrence: None)
  Receive Date: 20080630
  Receipt Date: 20080515
  Transmission Date: 20081010
  Serious: Yes (Other)
  Sender: FDA-Public Use
  Company Number: B0526442A

PATIENT
  Age: 32 Year
  Sex: Male

DRUGS (2)
  1. LAMIVUDINE [Suspect]
     Indication: HEPATITIS B
     Dosage: 100 MG / PER DAY /
  2. ADEFOVIR DIPIVOXIL TABLET (ADEFOVIR DIPIVOXIL) [Suspect]
     Indication: HEPATITIS B
     Dosage: 10 MG / PER DAY / ORAL
     Route: 048

REACTIONS (5)
  - ALANINE AMINOTRANSFERASE INCREASED [None]
  - HEPATITIS [None]
  - MULTIPLE-DRUG RESISTANCE [None]
  - RETROVIRAL REBOUND SYNDROME [None]
  - VIRAL MUTATION IDENTIFIED [None]
